FAERS Safety Report 25994770 (Version 1)
Quarter: 2025Q4

REPORT INFORMATION
  Report Type: Other
  Country: US (occurrence: US)
  Receive Date: 20251104
  Receipt Date: 20251104
  Transmission Date: 20260118
  Serious: Yes (Life-Threatening, Hospitalization, Other)
  Sender: BIONPHARMA INC.
  Company Number: US-Bion-015290

PATIENT
  Age: 18 Year
  Sex: Female

DRUGS (18)
  1. VALPROIC ACID [Suspect]
     Active Substance: VALPROIC ACID
     Indication: Agitation
  2. CLOZAPINE [Concomitant]
     Active Substance: CLOZAPINE
     Indication: Behaviour disorder
  3. ACETYLCYSTEINE [Concomitant]
     Active Substance: ACETYLCYSTEINE
     Indication: Mental disorder
  4. CLONIDINE [Concomitant]
     Active Substance: CLONIDINE
     Indication: Mental disorder
  5. OXCARBAZEPINE [Concomitant]
     Active Substance: OXCARBAZEPINE
     Indication: Mental disorder
  6. LORAZEPAM [Concomitant]
     Active Substance: LORAZEPAM
     Indication: Mental disorder
  7. FLUOXETINE [Concomitant]
     Active Substance: FLUOXETINE HYDROCHLORIDE
     Indication: Mental disorder
  8. HALOPERIDOL [Concomitant]
     Active Substance: HALOPERIDOL
     Indication: Mental disorder
  9. MELATONIN [Concomitant]
     Active Substance: MELATONIN
     Indication: Mental disorder
  10. DEXMEDETOMIDINE [Concomitant]
     Active Substance: DEXMEDETOMIDINE
     Indication: Agitation
  11. VALPROIC ACID [Suspect]
     Active Substance: VALPROIC ACID
     Indication: Behaviour disorder
  12. CLOZAPINE [Concomitant]
     Active Substance: CLOZAPINE
     Indication: Agitation
  13. CLOZAPINE [Concomitant]
     Active Substance: CLOZAPINE
     Indication: Behaviour disorder
     Dosage: AFTER 1 WEEK, HER CLOZAPINE DOSAGE HAD INCREASED TO 62.5 MG DAILY
  14. CLOZAPINE [Concomitant]
     Active Substance: CLOZAPINE
     Indication: Agitation
     Dosage: AFTER 1 WEEK, HER CLOZAPINE DOSAGE HAD INCREASED TO 62.5 MG DAILY
  15. CLOZAPINE [Concomitant]
     Active Substance: CLOZAPINE
     Indication: Behaviour disorder
     Dosage: CLOZAPINE WAS DECREASED FROM 62.5 TO 50 MG DAILY.
  16. CLOZAPINE [Concomitant]
     Active Substance: CLOZAPINE
     Indication: Agitation
     Dosage: CLOZAPINE WAS DECREASED FROM 62.5 TO 50 MG DAILY.
  17. LORAZEPAM [Concomitant]
     Active Substance: LORAZEPAM
     Indication: Mental disorder
  18. LORAZEPAM [Concomitant]
     Active Substance: LORAZEPAM
     Indication: Mental disorder

REACTIONS (2)
  - Myocarditis [Recovering/Resolving]
  - Drug interaction [Unknown]
